FAERS Safety Report 26150560 (Version 1)
Quarter: 2025Q4

REPORT INFORMATION
  Report Type: Spontaneous
  Country: US (occurrence: US)
  Receive Date: 20251212
  Receipt Date: 20251212
  Transmission Date: 20260117
  Serious: Yes (Life-Threatening, Hospitalization)
  Sender: MYLAN
  Company Number: US-MYLANLABS-2025M1105337

PATIENT
  Age: 62 Year
  Sex: Female

DRUGS (1)
  1. METHOTREXATE (METHOTREXATE SODIUM) [Suspect]
     Active Substance: METHOTREXATE SODIUM
     Indication: Rheumatoid arthritis
     Dosage: 7.5 MILLIGRAM, QW

REACTIONS (11)
  - Toxicity to various agents [Recovering/Resolving]
  - Myelosuppression [Recovering/Resolving]
  - Dermatitis [Recovering/Resolving]
  - Pancytopenia [Recovering/Resolving]
  - Febrile neutropenia [Recovering/Resolving]
  - Skin ulcer [Recovering/Resolving]
  - Skin lesion [Recovering/Resolving]
  - Epistaxis [Recovering/Resolving]
  - Petechiae [Recovering/Resolving]
  - Lip pain [Recovering/Resolving]
  - Haemorrhage [Recovering/Resolving]
